FAERS Safety Report 8987076 (Version 2)
Quarter: 2013Q1

REPORT INFORMATION
  Report Type: Spontaneous
  Country: GB (occurrence: GB)
  Receive Date: 20121226
  Receipt Date: 20130104
  Transmission Date: 20140127
  Serious: Yes (Other)
  Sender: FDA-Public Use
  Company Number: GB-PFIZER INC-2012325996

PATIENT
  Age: 72 Year
  Sex: Male

DRUGS (11)
  1. ATORVASTATIN CALCIUM [Suspect]
     Dosage: 10 MG, DAILY AT NIGHT
     Dates: start: 2012, end: 20121210
  2. SIMVASTATIN [Concomitant]
     Dosage: 40 MG, UNK
     Dates: end: 2012
  3. LISINOPRIL [Concomitant]
     Dosage: 40 MG, DAILY
  4. AMLODIPINE [Concomitant]
     Dosage: 10 MG, UNK
  5. AMLODIPINE [Concomitant]
     Dosage: 5 MG, UNK
  6. AMLODIPINE [Concomitant]
     Dosage: 2 MG, UNK
  7. DOXAZOSIN [Concomitant]
     Dosage: UNK
  8. ATENOLOL [Concomitant]
     Indication: HEART RATE INCREASED
     Dosage: UNK
  9. INSULIN GLARGINE [Concomitant]
     Dosage: 17 IU, PER DAY
  10. RANITIDINE [Concomitant]
     Indication: ABDOMINAL DISCOMFORT
     Dosage: FOR STOMACH PROBLEMS ON SIMVASTATIN
  11. NOVORAPID [Concomitant]
     Dosage: 4 UNITS IN THE MORNING BEFORE BREAKFAST, 8 UNITS AT LUNCH TIME AND 11 UNITS IN THE EVENING

REACTIONS (6)
  - Myalgia [Recovered/Resolved]
  - Arthralgia [Recovered/Resolved]
  - Dyspnoea [Recovered/Resolved]
  - Asthenia [Recovered/Resolved]
  - Blood glucose increased [Recovered/Resolved]
  - Feeling drunk [Recovered/Resolved]
